FAERS Safety Report 17952573 (Version 2)
Quarter: 2020Q3

REPORT INFORMATION
  Report Type: Spontaneous
  Country: CN (occurrence: CN)
  Receive Date: 20200626
  Receipt Date: 20200703
  Transmission Date: 20201103
  Serious: Yes (Death, Other)
  Sender: FDA-Public Use
  Company Number: CN-B.I. PHARMACEUTICALS,INC./RIDGEFIELD-2020-BI-031305

PATIENT
  Age: 64 Year
  Sex: Male

DRUGS (2)
  1. GILOTRIF [Suspect]
     Active Substance: AFATINIB
     Indication: NON-SMALL CELL LUNG CANCER
     Dosage: ORALLY FOR 16 DAYS
     Route: 048
     Dates: start: 20190806
  2. NIFEDIPINE. [Concomitant]
     Active Substance: NIFEDIPINE
     Indication: HYPERTENSION
     Route: 065

REACTIONS (12)
  - Malignant neoplasm progression [Fatal]
  - Metastases to spine [Unknown]
  - Ascites [Unknown]
  - Haematemesis [Unknown]
  - Nausea [Unknown]
  - Vomiting [Fatal]
  - Metastases to liver [Unknown]
  - Metastases to adrenals [Unknown]
  - Respiratory disorder [Unknown]
  - Metastases to lymph nodes [Unknown]
  - Metastases to central nervous system [Unknown]
  - Regurgitation [Unknown]

NARRATIVE: CASE EVENT DATE: 20190821
